FAERS Safety Report 25074575 (Version 2)
Quarter: 2025Q1

REPORT INFORMATION
  Report Type: Spontaneous
  Country: US (occurrence: US)
  Receive Date: 20250313
  Receipt Date: 20250326
  Transmission Date: 20250409
  Serious: Yes (Hospitalization)
  Sender: TEVA
  Company Number: US-TEVA-VS-3306301

PATIENT
  Age: 82 Year
  Sex: Female

DRUGS (2)
  1. CARBOPLATIN [Suspect]
     Active Substance: CARBOPLATIN
     Indication: Prophylactic chemotherapy
     Route: 065
  2. PACLITAXEL [Suspect]
     Active Substance: PACLITAXEL
     Indication: Prophylactic chemotherapy
     Route: 065

REACTIONS (2)
  - Autoimmune haemolytic anaemia [Recovering/Resolving]
  - Acute kidney injury [Recovering/Resolving]
